FAERS Safety Report 18552015 (Version 1)
Quarter: 2020Q4

REPORT INFORMATION
  Report Type: Spontaneous
  Country: US (occurrence: US)
  Receive Date: 20201126
  Receipt Date: 20201126
  Transmission Date: 20210114
  Serious: Yes (Other)
  Sender: FDA-Public Use
  Company Number: US-ROCHE-2713343

PATIENT
  Age: 63 Year
  Sex: Female

DRUGS (1)
  1. XELODA [Suspect]
     Active Substance: CAPECITABINE
     Indication: RECTAL CANCER
     Route: 048
     Dates: start: 202008

REACTIONS (5)
  - Mass [Unknown]
  - Hallucinations, mixed [Unknown]
  - Fatigue [Unknown]
  - Memory impairment [Unknown]
  - Dyspepsia [Unknown]

NARRATIVE: CASE EVENT DATE: 20201102
